FAERS Safety Report 6226719 (Version 2)
Quarter: 2020Q3

REPORT INFORMATION
  Report Type: Report from Study
  Country: DE (occurrence: DE)
  Receive Date: 20070130
  Receipt Date: 20070302
  Transmission Date: 20201104
  Serious: Yes (Other)
  Sender: FDA-Public Use
  Company Number: DE-ROCHE-479603

PATIENT
  Sex: Female

DRUGS (11)
  1. PENTAERYTHRITOL TETRANITRATE [Concomitant]
     Active Substance: PENTAERYTHRITOL TETRANITRATE
     Dosage: STRENGTH REPORTED AS 50 FREQUENCY REPORTED AS 1?0?1
  2. LOVASTATIN. [Concomitant]
     Active Substance: LOVASTATIN
     Dosage: FREQUENCY REPORTED AS 1 INTHE EVENING
  3. CALCIUM CITRATE\CALCIUM GLUCONATE\GLUTAMINE\SODIUM MONOFLUOROPHOSPHATE [Concomitant]
     Dosage: FREQUENCY REPORTED AS 1?1?1
  4. SOTALOL HYDROCHLORIDE. [Concomitant]
     Active Substance: SOTALOL HYDROCHLORIDE
     Dosage: FREQUENCY REPORTED AS 1?0?1
  5. GLUCOBAY [Concomitant]
     Active Substance: ACARBOSE
     Dosage: DOSE REPORTED AS 1/2?1/2?1/2 STRENGTH REPORTED AS 100
  6. MANILIL [Concomitant]
     Dosage: DOSE REPORTED AS 1 IN THE MORNING STRENGTH REPORTED AS 3.5
  7. IBANDRONIC ACID. [Suspect]
     Active Substance: IBANDRONIC ACID
     Indication: OSTEOPOROSIS POSTMENOPAUSAL
     Route: 048
     Dates: start: 20061101
  8. DEPOT?H?INSULIN [Concomitant]
     Dosage: STRENGTH REPORTED AS 100
  9. ESTRADIOL. [Concomitant]
     Active Substance: ESTRADIOL
     Dosage: FREQUENCY REPORTED AS EVERY SECOND DAY 1 IN THE EVENING
  10. LEVOTHYROXINE. [Concomitant]
     Active Substance: LEVOTHYROXINE
     Dosage: DOSE REPORTED AS 1 IN THE MORNING STRENGTH REPORTED AS 100
  11. DIGITOXIN [Concomitant]
     Active Substance: DIGITOXIN
     Dosage: STRENGTH REPORTED AS 0.07 FREQUENCY REPORTED AS 1/2 IN THE MORNING

REACTIONS (1)
  - Abdominal discomfort [Recovered/Resolved]
